FAERS Safety Report 5876879-3 (Version None)
Quarter: 2008Q3

REPORT INFORMATION
  Report Type: 
  Country: None (occurrence: None)
  Receive Date: 20080910
  Receipt Date: 20080829
  Transmission Date: 20090109
  Serious: Yes (Hospitalization)
  Sender: FDA-Public Use
  Company Number: US-CVT-080075

PATIENT

DRUGS (18)
  1. RANEXA [Suspect]
     Indication: CHEST PAIN
     Dosage: 500 MG, BID
     Route: 048
     Dates: start: 20071001, end: 20080401
  2. RANEXA [Suspect]
     Dosage: 1000 MG, BID
     Route: 048
     Dates: start: 20080401
  3. RANEXA [Suspect]
     Dosage: 2000 MG, BID
     Route: 048
     Dates: start: 20080701, end: 20080701
  4. COUMADIN [Concomitant]
     Indication: DRUG USE FOR UNKNOWN INDICATION
  5. ASPIRIN [Concomitant]
     Indication: DRUG USE FOR UNKNOWN INDICATION
     Dosage: 81 MG, QD
  6. COLCHICINE [Concomitant]
     Indication: GOUT
     Dosage: UNK, QD
     Dates: end: 20080804
  7. NITROGLYCERIN [Concomitant]
     Indication: DRUG USE FOR UNKNOWN INDICATION
     Dosage: UNK, PRN
  8. NORVASC [Concomitant]
     Indication: DRUG USE FOR UNKNOWN INDICATION
     Dosage: 10 MG, UNK
  9. PLAVIX [Concomitant]
     Indication: DRUG USE FOR UNKNOWN INDICATION
     Dosage: 75 MG, QD
  10. PROTONIX                           /01263201/ [Concomitant]
     Indication: DRUG USE FOR UNKNOWN INDICATION
     Dosage: 40 MG, QD
     Route: 048
  11. TENORMIN [Concomitant]
     Indication: DRUG USE FOR UNKNOWN INDICATION
     Dosage: 50 MG, QD
     Route: 048
  12. M.V.I. [Concomitant]
     Indication: DRUG USE FOR UNKNOWN INDICATION
     Dosage: UNK, QD
     Route: 048
  13. INSULIN                            /00030501/ [Concomitant]
     Indication: DRUG USE FOR UNKNOWN INDICATION
  14. LASIX [Concomitant]
     Indication: DRUG USE FOR UNKNOWN INDICATION
     Dosage: 20 MG, QD
     Route: 048
  15. IMDUR [Concomitant]
     Indication: DRUG USE FOR UNKNOWN INDICATION
     Dosage: 20 MG, QD
     Route: 048
  16. LISINOPRIL                         /00894001/ [Concomitant]
     Indication: DRUG USE FOR UNKNOWN INDICATION
     Dosage: 5 MG, QD
     Route: 048
  17. REGLAN [Concomitant]
     Indication: DRUG USE FOR UNKNOWN INDICATION
     Dosage: 10 MG, QD
     Route: 048
  18. ZOCOR [Concomitant]
     Dosage: 40 MG, QD

REACTIONS (11)
  - ACCIDENTAL OVERDOSE [None]
  - ASTHENIA [None]
  - CHEST PAIN [None]
  - DYSPHONIA [None]
  - FLAT AFFECT [None]
  - HALLUCINATION [None]
  - HYPOKINESIA [None]
  - MEMORY IMPAIRMENT [None]
  - MUSCLE TWITCHING [None]
  - TREMOR [None]
  - URINARY TRACT INFECTION [None]
